FAERS Safety Report 9190168 (Version 1)
Quarter: 2013Q1

REPORT INFORMATION
  Report Type: Report from Study
  Country: NZ (occurrence: NZ)
  Receive Date: 20130326
  Receipt Date: 20130326
  Transmission Date: 20140127
  Serious: Yes (Other)
  Sender: FDA-Public Use
  Company Number: NZ-SANOFI-AVENTIS-2013SA028694

PATIENT
  Age: 68 Year
  Sex: Male

DRUGS (5)
  1. ARAVA [Suspect]
     Indication: PRODUCT USED FOR UNKNOWN INDICATION
     Route: 048
     Dates: start: 20111101
  2. AMITRIPTYLINE [Concomitant]
  3. GABAPENTIN [Concomitant]
  4. TRAMADOL [Concomitant]
  5. ALLOPURINOL [Concomitant]

REACTIONS (7)
  - Spinal fusion surgery [Unknown]
  - Hemiplegia [Unknown]
  - Dysarthria [Unknown]
  - Paraesthesia [Not Recovered/Not Resolved]
  - Burning sensation [Unknown]
  - Pain in extremity [Not Recovered/Not Resolved]
  - Amnesia [Unknown]
